FAERS Safety Report 16762201 (Version 2)
Quarter: 2019Q3

REPORT INFORMATION
  Report Type: Spontaneous
  Country: US (occurrence: US)
  Receive Date: 20190831
  Receipt Date: 20190921
  Transmission Date: 20191005
  Serious: No
  Sender: FDA-Public Use
  Company Number: US-HETERO-HET2019US01186

PATIENT
  Sex: Female
  Weight: 86 kg

DRUGS (3)
  1. FLUTICASONE. [Concomitant]
     Active Substance: FLUTICASONE
     Indication: PRODUCT USED FOR UNKNOWN INDICATION
     Dosage: 50 MG
     Route: 065
  2. MONTELUKAST [Suspect]
     Active Substance: MONTELUKAST SODIUM
     Indication: HYPERSENSITIVITY
     Dosage: 10 MG, BID
     Route: 065
     Dates: end: 2018
  3. VENLAFAXINE [Concomitant]
     Active Substance: VENLAFAXINE HYDROCHLORIDE
     Indication: PAIN
     Dosage: AS REQUIRED (SOMETIMES FOR PAIN)
     Route: 065

REACTIONS (7)
  - Skin lesion [Unknown]
  - Swelling face [Unknown]
  - Skin discolouration [Unknown]
  - Oral pain [Unknown]
  - Pain [Unknown]
  - Peripheral swelling [Unknown]
  - Dysphagia [Unknown]
